FAERS Safety Report 10758032 (Version 1)
Quarter: 2015Q1

REPORT INFORMATION
  Report Type: Spontaneous
  Country: US (occurrence: US)
  Receive Date: 20150203
  Receipt Date: 20150203
  Transmission Date: 20150721
  Serious: Yes (Life-Threatening, Hospitalization, Other)
  Sender: FDA-Public Use
  Company Number: US-APOTEX-2015AP005453

PATIENT
  Age: 15 Year
  Sex: Male
  Weight: 76.2 kg

DRUGS (5)
  1. AMIODARONE HCL [Suspect]
     Active Substance: AMIODARONE HYDROCHLORIDE
     Indication: VENTRICULAR TACHYCARDIA
     Dosage: A DOSE
     Route: 050
  2. ADENOSINE. [Concomitant]
     Active Substance: ADENOSINE
     Indication: VENTRICULAR TACHYCARDIA
     Dosage: MULTIPLE DOSES
     Route: 065
  3. ATENOLOL. [Concomitant]
     Active Substance: ATENOLOL
     Indication: VENTRICULAR TACHYCARDIA
     Route: 065
  4. DILTIAZEM [Concomitant]
     Active Substance: DILTIAZEM
     Indication: VENTRICULAR TACHYCARDIA
     Dosage: A DOSE
     Route: 065
  5. SOTALOL. [Concomitant]
     Active Substance: SOTALOL
     Indication: VENTRICULAR TACHYCARDIA
     Route: 065

REACTIONS (2)
  - Haemodynamic instability [Recovered/Resolved]
  - Anaphylactic shock [Recovered/Resolved]
